FAERS Safety Report 24604169 (Version 1)
Quarter: 2024Q4

REPORT INFORMATION
  Report Type: Spontaneous
  Country: PL (occurrence: PL)
  Receive Date: 20241111
  Receipt Date: 20241111
  Transmission Date: 20250115
  Serious: Yes (Other)
  Sender: PFIZER
  Company Number: PL-ROCHE-10000114166

PATIENT
  Age: 30 Year
  Sex: Female
  Weight: 86.7 kg

DRUGS (30)
  1. RITUXIMAB [Suspect]
     Active Substance: RITUXIMAB
     Indication: Non-Hodgkin^s lymphoma
     Dosage: 738.8 MG, EVERY 3 WEEKS
     Route: 042
     Dates: start: 20240617
  2. RITUXIMAB [Suspect]
     Active Substance: RITUXIMAB
     Dosage: 738.8 MG, RECEIVED THE MOST RECENT DOSE OF RITUXIMAB PRIOR TO AE
     Dates: start: 20240930
  3. DOXORUBICIN HYDROCHLORIDE [Suspect]
     Active Substance: DOXORUBICIN HYDROCHLORIDE
     Indication: Non-Hodgkin^s lymphoma
     Dosage: 98.5 MG, EVERY 3 WEEKS
     Route: 042
     Dates: start: 20240617
  4. DOXORUBICIN HYDROCHLORIDE [Suspect]
     Active Substance: DOXORUBICIN HYDROCHLORIDE
     Dosage: 98.5 MG, RECEIVED THE MOST RECENT DOSE OF DOXORUBICIN PRIOR TO AE
     Dates: start: 20240930
  5. METHYLPREDNISOLONE [Suspect]
     Active Substance: METHYLPREDNISOLONE
     Indication: Non-Hodgkin^s lymphoma
     Dosage: 100 MG, EVERY 3 WEEKS
     Route: 048
     Dates: start: 20240617
  6. METHYLPREDNISOLONE [Suspect]
     Active Substance: METHYLPREDNISOLONE
     Dosage: 100 MG, EVERY 3 WEEKS; ON 04-OCT-2024, SHE RECEIVED THE MOST RECENT DOSE OF PREDNISONE PRIOR TO AE (
     Dates: start: 20241004
  7. POLATUZUMAB VEDOTIN [Suspect]
     Active Substance: POLATUZUMAB VEDOTIN
     Indication: Non-Hodgkin^s lymphoma
     Dosage: 155.7 MG, EVERY 3 WEEKS
     Route: 042
     Dates: start: 20240618
  8. POLATUZUMAB VEDOTIN [Suspect]
     Active Substance: POLATUZUMAB VEDOTIN
     Dosage: 154.8 MG, RECEIVED THE MOST RECENT DOSE OF POLATUZUMAB VEDOTIN PRIOR TO AE
     Dates: start: 20240930
  9. CYCLOPHOSPHAMIDE [Suspect]
     Active Substance: CYCLOPHOSPHAMIDE
     Indication: Non-Hodgkin^s lymphoma
     Dosage: 1477.5 MG, EVERY 3 WEEKS
     Route: 042
     Dates: start: 20240617
  10. CYCLOPHOSPHAMIDE [Suspect]
     Active Substance: CYCLOPHOSPHAMIDE
     Dosage: 573.9 MG, RECEIVED THE MOST RECENT DOSE OF CYCLOPHOSPHAMIDE PRIOR TO AE
     Dates: start: 20240930
  11. PREDNISONE [Suspect]
     Active Substance: PREDNISONE
     Indication: Non-Hodgkin^s lymphoma
     Dosage: 100 MG, EVERY 3 WEEKS
     Route: 048
     Dates: start: 20240617
  12. PREDNISONE [Suspect]
     Active Substance: PREDNISONE
     Dosage: 100 MG, RECEIVED THE MOST RECENT DOSE OF PREDNISONE PRIOR TO AE
     Dates: start: 20241004
  13. PREDNISOLONE [Suspect]
     Active Substance: PREDNISOLONE
     Indication: Non-Hodgkin^s lymphoma
     Dosage: 100 MG, EVERY 3 WEEKS
     Route: 048
     Dates: start: 20240617
  14. PREDNISOLONE [Suspect]
     Active Substance: PREDNISOLONE
     Dosage: 100 MG, RECEIVED THE MOST RECENT DOSE OF PREDNISONE PRIOR TO AE
     Dates: start: 20241004
  15. FLECAINIDUM [Concomitant]
     Indication: Supraventricular tachycardia
     Dosage: 100 MG, 1X/DAY
     Route: 048
     Dates: start: 202301
  16. ENOXAPARIN SODIUM [Concomitant]
     Active Substance: ENOXAPARIN SODIUM
     Dosage: 0.4 MG, 1X/DAY; GIVEN FOR PROPHYLAXIS IS YES
     Route: 058
     Dates: start: 20240516
  17. PANTOPRAZOLE [Concomitant]
     Active Substance: PANTOPRAZOLE
     Dosage: 20 MG, 1X/DAY; GIVEN FOR PROPHYLAXIS IS YES
     Route: 048
     Dates: start: 20240516
  18. ACYCLOVIR [Concomitant]
     Active Substance: ACYCLOVIR
     Dosage: 400 MG; FREQ:0.5 D;GIVEN FOR PROPHYLAXIS IS YES
     Route: 048
     Dates: start: 20240617
  19. ORNITHINE ASPARTATE [Concomitant]
     Active Substance: ORNITHINE ASPARTATE
     Dosage: 3 G; FREQ:.33 D;GIVEN FOR PROPHYLAXIS IS YES
     Route: 048
     Dates: start: 20240610
  20. CLEMASTINUM [CLEMASTINE] [Concomitant]
     Dosage: 2 MG, SINGLE
     Route: 042
     Dates: start: 20240909, end: 20240909
  21. CLEMASTINUM [CLEMASTINE] [Concomitant]
     Dosage: 2 MG, 1X/DAY
     Route: 042
     Dates: start: 20240930, end: 20240930
  22. CLEMASTINUM [CLEMASTINE] [Concomitant]
     Dosage: 2 MG, SINGLE
     Route: 042
     Dates: start: 20241021, end: 20241021
  23. ACETAMINOPHEN [Concomitant]
     Active Substance: ACETAMINOPHEN
     Dosage: 1000 MG, SINGLE
     Route: 048
     Dates: start: 20240909, end: 20240909
  24. ACETAMINOPHEN [Concomitant]
     Active Substance: ACETAMINOPHEN
     Dosage: 1000 MG, 1X/DAY
     Route: 048
     Dates: start: 20240930, end: 20240930
  25. ACETAMINOPHEN [Concomitant]
     Active Substance: ACETAMINOPHEN
     Dosage: 1000 MG, SINGLE
     Route: 042
     Dates: start: 20241021, end: 20241021
  26. ONDANSETRON [Concomitant]
     Active Substance: ONDANSETRON
     Dosage: 8 MG, SINGLE; GIVEN FOR PROPHYLAXIS IS YES
     Route: 042
     Dates: start: 20240909, end: 20240909
  27. ONDANSETRON [Concomitant]
     Active Substance: ONDANSETRON
     Dosage: 8 MG, SINGLE; GIVEN FOR PROPHYLAXIS IS YES
     Route: 042
     Dates: start: 20240930, end: 20240930
  28. FILGRASTIMUM [Concomitant]
     Dosage: UNK UNK, DAILY; DRUG DOSE FIRST ADMINISTERED IS 1 AMPULEGIVEN FOR PROPHYLAXIS IS YES
     Route: 058
     Dates: start: 20240911, end: 20240917
  29. ALLOPURINOL [Concomitant]
     Active Substance: ALLOPURINOL
     Dosage: 300 MG, 1X/DAY; GIVEN FOR PROPHYLAXIS IS YES
     Route: 048
     Dates: start: 20240708
  30. DEXAMETHASONE SODIUM PHOSPHATE [Concomitant]
     Active Substance: DEXAMETHASONE SODIUM PHOSPHATE
     Dosage: 8 MG, SINGLE
     Route: 042
     Dates: start: 20241021, end: 20241021

REACTIONS (1)
  - Polyneuropathy [Recovering/Resolving]

NARRATIVE: CASE EVENT DATE: 20241009
